FAERS Safety Report 7451763-2 (Version None)
Quarter: 2011Q2

REPORT INFORMATION
  Report Type: 
  Country: None (occurrence: None)
  Receive Date: 20110502
  Receipt Date: 20110118
  Transmission Date: 20111010
  Serious: No
  Sender: FDA-Public Use
  Company Number: US-ASTRAZENECA-2003UW09509

PATIENT
  Age: 57 Year
  Sex: Male
  Weight: 86.2 kg

DRUGS (1)
  1. NEXIUM [Suspect]
     Indication: GASTROOESOPHAGEAL REFLUX DISEASE
     Route: 048
     Dates: start: 20021101

REACTIONS (6)
  - DIARRHOEA [None]
  - HYPERPHAGIA [None]
  - GASTROENTERITIS VIRAL [None]
  - URTICARIA [None]
  - VOMITING [None]
  - ABDOMINAL PAIN [None]
